FAERS Safety Report 4312144-3 (Version None)
Quarter: 2004Q1

REPORT INFORMATION
  Report Type: 
  Country: None (occurrence: None)
  Receive Date: 20040303
  Receipt Date: 20040223
  Transmission Date: 20041129
  Serious: Yes (Death)
  Sender: FDA-Public Use
  Company Number: 2004012041

PATIENT
  Age: 78 Year
  Sex: Male

DRUGS (10)
  1. AMLODIPINE [Suspect]
     Indication: ILL-DEFINED DISORDER
     Dosage: 5 MG, ORAL
     Route: 048
     Dates: end: 20030720
  2. BISOPROLOL FUMARATE [Suspect]
     Indication: ILL-DEFINED DISORDER
     Dosage: (DAILY), ORAL
     Route: 048
     Dates: start: 20030720, end: 20030920
  3. ATENOLOL [Suspect]
     Indication: ILL-DEFINED DISORDER
     Dosage: 100 MG, ORAL
     Route: 048
     Dates: end: 20030720
  4. SIMVASTATIN [Suspect]
     Indication: ILL-DEFINED DISORDER
     Dosage: 5 MG (DAILY), ORAL
     Route: 048
     Dates: start: 20000615, end: 20030920
  5. FUROSEMIDE [Concomitant]
  6. LISINOPRIL [Concomitant]
  7. NIFEDIPINE [Concomitant]
  8. OMEPRAZOLE [Concomitant]
  9. PREDNISOLONE SODIUM SULFOBENZOATE [Concomitant]
  10. FLUTICASONE PROPIONATE [Concomitant]

REACTIONS (3)
  - CONDITION AGGRAVATED [None]
  - INTERSTITIAL LUNG DISEASE [None]
  - PULMONARY FIBROSIS [None]
